FAERS Safety Report 8488495-8 (Version None)
Quarter: 2012Q3

REPORT INFORMATION
  Report Type: 
  Country: None (occurrence: None)
  Receive Date: 20120705
  Receipt Date: 20120703
  Transmission Date: 20120928
  Serious: Yes (Hospitalization, Other)
  Sender: FDA-Public Use
  Company Number: KR-PFIZER INC-2012159887

PATIENT
  Age: 54 Year
  Sex: Male

DRUGS (1)
  1. SUNITINIB MALATE [Suspect]
     Route: 048

REACTIONS (2)
  - SWELLING [None]
  - CARDIAC DISORDER [None]
